FAERS Safety Report 7676112-6 (Version None)
Quarter: 2011Q3

REPORT INFORMATION
  Report Type: 
  Country: None (occurrence: None)
  Receive Date: 20110811
  Receipt Date: 20110801
  Transmission Date: 20111222
  Serious: Yes (Hospitalization)
  Sender: FDA-Public Use
  Company Number: US-JNJFOC-20070704211

PATIENT
  Sex: Male
  Weight: 73 kg

DRUGS (2)
  1. PREDNISONE [Concomitant]
  2. INFLIXIMAB [Suspect]
     Indication: INFLAMMATORY BOWEL DISEASE
     Dosage: TOTAL 6 DOSES
     Route: 042
     Dates: start: 20061121, end: 20070531

REACTIONS (1)
  - COLECTOMY [None]
